FAERS Safety Report 22313637 (Version 1)
Quarter: 2023Q2

REPORT INFORMATION
  Report Type: Spontaneous
  Country: CN (occurrence: CN)
  Receive Date: 20230512
  Receipt Date: 20230512
  Transmission Date: 20230722
  Serious: Yes (Hospitalization, Other)
  Sender: FDA-Public Use
  Company Number: CN-AJANTA-2023AJA00077

PATIENT
  Age: 30 Year
  Sex: Female

DRUGS (4)
  1. VORICONAZOLE [Suspect]
     Active Substance: VORICONAZOLE
     Indication: Candida endophthalmitis
     Dosage: 100 UG/0.1 ML
     Route: 035
  2. ITRACONAZOLE [Concomitant]
     Active Substance: ITRACONAZOLE
     Route: 048
  3. TROPICAMIDE [Concomitant]
     Active Substance: TROPICAMIDE
     Route: 061
  4. FLUCONAZOLE [Concomitant]
     Active Substance: FLUCONAZOLE
     Dosage: 200MG/DAY
     Route: 042

REACTIONS (2)
  - Visual acuity reduced [Recovering/Resolving]
  - Therapeutic product effect incomplete [Unknown]
